FAERS Safety Report 19879722 (Version 1)
Quarter: 2021Q3

REPORT INFORMATION
  Report Type: Spontaneous
  Country: GB (occurrence: GB)
  Receive Date: 20210924
  Receipt Date: 20210924
  Transmission Date: 20211014
  Serious: Yes (Other)
  Sender: FDA-Public Use
  Company Number: GB-PFIZER INC-202101217854

PATIENT
  Age: 43 Year
  Sex: Female
  Weight: 88.44 kg

DRUGS (6)
  1. TRETINOIN. [Suspect]
     Active Substance: TRETINOIN
     Indication: ACNE
     Dosage: APPLY 1?2 PUMPS IN THE EVENING
     Route: 061
     Dates: start: 20210420, end: 20210907
  2. IBUPROFEN. [Concomitant]
     Active Substance: IBUPROFEN
     Dosage: UNK
  3. CLINDAMYCIN PHOSPHATE. [Suspect]
     Active Substance: CLINDAMYCIN PHOSPHATE
     Indication: ACNE
     Dosage: APPLY 1?2 PUMPS IN THE EVENING
     Route: 061
     Dates: start: 20210420, end: 20210907
  4. NIACINAMIDE [Suspect]
     Active Substance: NIACINAMIDE
     Indication: ACNE
     Dosage: APPLY 1?2 PUMPS IN THE EVENING
     Route: 061
     Dates: start: 20210420, end: 20210907
  5. PARACETAMOL [Concomitant]
     Active Substance: ACETAMINOPHEN
     Dosage: UNK
  6. SERTRALINE [Concomitant]
     Active Substance: SERTRALINE HYDROCHLORIDE
     Dosage: UNK

REACTIONS (9)
  - Drug hypersensitivity [Unknown]
  - Pruritus [Unknown]
  - Erythema [Unknown]
  - Periorbital swelling [Unknown]
  - Dry skin [Unknown]
  - Ocular hyperaemia [Unknown]
  - Exfoliative rash [Unknown]
  - Face oedema [Recovering/Resolving]
  - Off label use [Unknown]

NARRATIVE: CASE EVENT DATE: 20210420
